FAERS Safety Report 6536212-0 (Version None)
Quarter: 2010Q1

REPORT INFORMATION
  Report Type: 
  Country: None (occurrence: None)
  Receive Date: 20100113
  Receipt Date: 20091103
  Transmission Date: 20100710
  Serious: No
  Sender: FDA-Public Use
  Company Number: US-ALLERGAN-0915213US

PATIENT
  Age: 47 Year
  Sex: Female

DRUGS (4)
  1. LATISSE [Suspect]
     Indication: GROWTH OF EYELASHES
     Dosage: 1 GTT, QHS
     Route: 061
     Dates: start: 20090501
  2. BIRTH CONTROL  PILL [Concomitant]
  3. MASCARA [Concomitant]
  4. EYELINER [Concomitant]

REACTIONS (1)
  - MADAROSIS [None]
